FAERS Safety Report 20896947 (Version 1)
Quarter: 2022Q2

REPORT INFORMATION
  Report Type: Spontaneous
  Country: CN (occurrence: CN)
  Receive Date: 20220531
  Receipt Date: 20220531
  Transmission Date: 20220720
  Serious: Yes (Other)
  Sender: FDA-Public Use
  Company Number: CN-PFIZER INC-202200772377

PATIENT
  Age: 67 Year
  Sex: Female
  Weight: 55 kg

DRUGS (2)
  1. CELECOXIB [Suspect]
     Active Substance: CELECOXIB
     Indication: Back pain
     Dosage: 1 PILL, 1X/DAY
     Route: 048
     Dates: start: 20220523, end: 20220523
  2. HERBALS [Suspect]
     Active Substance: HERBALS
     Indication: Back pain
     Dosage: 3 TABLETS, 3X/DAY
     Route: 048
     Dates: start: 20220523, end: 20220523

REACTIONS (3)
  - Orbital oedema [Recovering/Resolving]
  - Feeling hot [Recovering/Resolving]
  - Off label use [Unknown]

NARRATIVE: CASE EVENT DATE: 20220523
